FAERS Safety Report 11991377 (Version 1)
Quarter: 2016Q1

REPORT INFORMATION
  Report Type: Spontaneous
  Country: US (occurrence: None)
  Receive Date: 20160202
  Receipt Date: 20160202
  Transmission Date: 20160526
  Serious: No
  Sender: FDA-Public Use
  Company Number: None

PATIENT
  Age: 28 Year
  Sex: Female
  Weight: 113.4 kg

DRUGS (6)
  1. VITAMIN B12 [Concomitant]
     Active Substance: CYANOCOBALAMIN
  2. MULTIVITAMIN [Concomitant]
     Active Substance: VITAMINS
  3. IRON SUPPLEMENT [Concomitant]
     Active Substance: IRON
  4. WELLBUTRIN XL [Suspect]
     Active Substance: BUPROPION HYDROCHLORIDE
     Indication: DEPRESSION
     Dosage: 300 MG XL, 1 PILL, ONCE DAILY, TAKEN BY MOUTH
     Dates: start: 20151208, end: 20151215
  5. VITAMIN D [Concomitant]
     Active Substance: CHOLECALCIFEROL
  6. BUPROPION. [Concomitant]
     Active Substance: BUPROPION

REACTIONS (9)
  - Agitation [None]
  - Suicidal ideation [None]
  - Depression [None]
  - Feeling abnormal [None]
  - Fatigue [None]
  - Product quality issue [None]
  - Anxiety [None]
  - Nausea [None]
  - Hunger [None]

NARRATIVE: CASE EVENT DATE: 20151208
